FAERS Safety Report 20560315 (Version 1)
Quarter: 2022Q1

REPORT INFORMATION
  Report Type: Spontaneous
  Country: SE (occurrence: SE)
  Receive Date: 20220307
  Receipt Date: 20220307
  Transmission Date: 20220423
  Serious: Yes (Hospitalization)
  Sender: FDA-Public Use
  Company Number: SE-MYLANLABS-2022M1017394

PATIENT
  Age: 53 Year
  Sex: Male

DRUGS (6)
  1. DICLOFENAC [Suspect]
     Active Substance: DICLOFENAC
     Indication: Conjunctivitis
     Dosage: UNK (1 MG/ML, THREE TIMES PER DAY, EYE DROPS), FORMULATION: DROPS
     Route: 061
  2. DICLOFENAC [Suspect]
     Active Substance: DICLOFENAC
     Indication: Exposure via eye contact
  3. CHLORAMPHENICOL [Concomitant]
     Active Substance: CHLORAMPHENICOL
     Indication: Exposure via eye contact
     Dosage: UNK, QID, 5 MG/ML, EYE DROPS
     Route: 061
  4. CHLORAMPHENICOL [Concomitant]
     Active Substance: CHLORAMPHENICOL
     Indication: Conjunctivitis
  5. CARBOMER [Concomitant]
     Active Substance: CARBOMER
     Indication: Exposure via eye contact
     Dosage: UNK, QH, 2 MG/G
     Route: 061
  6. CARBOMER [Concomitant]
     Active Substance: CARBOMER
     Indication: Conjunctivitis

REACTIONS (3)
  - Ulcerative keratitis [Recovered/Resolved]
  - Corneal perforation [Recovered/Resolved]
  - Off label use [Unknown]
